FAERS Safety Report 9783385 (Version 5)
Quarter: 2014Q4

REPORT INFORMATION
  Report Type: Report from Study
  Country: US (occurrence: US)
  Receive Date: 20131226
  Receipt Date: 20141009
  Transmission Date: 20150529
  Serious: Yes (Hospitalization)
  Sender: FDA-Public Use
  Company Number: US-ACTELION-A-US2013-92547

PATIENT
  Age: 53 Year
  Sex: Female

DRUGS (10)
  1. SERTRALINE [Concomitant]
     Active Substance: SERTRALINE HYDROCHLORIDE
     Dosage: 150 MG, UNK
  2. FUROSEMIDE. [Suspect]
     Active Substance: FUROSEMIDE
     Indication: FLUID IMBALANCE
     Dosage: 400 MG, BID
     Route: 048
  3. COUMADIN [Concomitant]
     Active Substance: WARFARIN SODIUM
  4. TORSEMIDE. [Concomitant]
     Active Substance: TORSEMIDE
     Dosage: 400 MG, UNK
  5. METOLAZON [Concomitant]
     Dosage: 25 MG, TWICE WEEKLY
  6. VELETRI [Suspect]
     Active Substance: EPOPROSTENOL
     Indication: PULMONARY ARTERIAL HYPERTENSION
     Dosage: 28.2 NG/KG, PER MIN
     Route: 042
     Dates: start: 20120102
  7. SILDENAFIL. [Concomitant]
     Active Substance: SILDENAFIL
     Dosage: 20 MG, TID
  8. DIGOXIN. [Concomitant]
     Active Substance: DIGOXIN
     Dosage: 0.125 MG, UNK
  9. METFORMIN [Concomitant]
     Active Substance: METFORMIN HYDROCHLORIDE
     Indication: ESSENTIAL HYPERTENSION
  10. RIOCIGUAT [Concomitant]
     Active Substance: RIOCIGUAT

REACTIONS (10)
  - Electrolyte imbalance [Recovered/Resolved]
  - Catheter site swelling [Unknown]
  - Right ventricular failure [Not Recovered/Not Resolved]
  - Fluid retention [Not Recovered/Not Resolved]
  - Oedema [Not Recovered/Not Resolved]
  - Fluid overload [Not Recovered/Not Resolved]
  - Hypokalaemia [Recovered/Resolved]
  - Medical device implantation [Unknown]
  - Hyponatraemia [Recovered/Resolved]
  - False positive investigation result [Recovered/Resolved]

NARRATIVE: CASE EVENT DATE: 20140121
